FAERS Safety Report 23774078 (Version 1)
Quarter: 2024Q2

REPORT INFORMATION
  Report Type: Report from Study
  Country: US (occurrence: US)
  Receive Date: 20240423
  Receipt Date: 20240423
  Transmission Date: 20240715
  Serious: Yes (Other)
  Sender: FDA-Public Use
  Company Number: US-002147023-NVSC2024US084183

PATIENT
  Sex: Female
  Weight: 69.841 kg

DRUGS (1)
  1. LEQVIO [Suspect]
     Active Substance: INCLISIRAN SODIUM
     Indication: Product used for unknown indication
     Dosage: 284 MG, OTHER (EVERY 5 MONTHS)
     Route: 058
     Dates: start: 20230102

REACTIONS (4)
  - Paralysis [Recovered/Resolved]
  - Pain [Recovered/Resolved]
  - Renal disorder [Recovered/Resolved]
  - Hypokinesia [Recovered/Resolved]
